FAERS Safety Report 25670487 (Version 5)
Quarter: 2025Q4

REPORT INFORMATION
  Report Type: Spontaneous
  Country: US (occurrence: US)
  Receive Date: 20250812
  Receipt Date: 20251013
  Transmission Date: 20260118
  Serious: No
  Sender: PFIZER
  Company Number: US-PFIZER INC-202500159690

PATIENT
  Age: 49 Year
  Sex: Female

DRUGS (1)
  1. GENOTROPIN [Suspect]
     Active Substance: SOMATROPIN
     Indication: Growth hormone deficiency
     Dosage: 0.4 MG, DAILY, EVERY MORNING
     Dates: start: 20250801

REACTIONS (4)
  - Device breakage [Unknown]
  - Device issue [Unknown]
  - Contusion [Unknown]
  - Abdominal mass [Unknown]

NARRATIVE: CASE EVENT DATE: 20250801
